FAERS Safety Report 7031632-2 (Version None)
Quarter: 2010Q4

REPORT INFORMATION
  Report Type: 
  Country: None (occurrence: None)
  Receive Date: 20101006
  Receipt Date: 20101006
  Transmission Date: 20110411
  Serious: Yes (Hospitalization)
  Sender: FDA-Public Use
  Company Number: None

PATIENT
  Age: 63 Year
  Sex: Male
  Weight: 119.8 kg

DRUGS (2)
  1. LISINOPRIL AND HYDROCHLOROTHIAZIDE [Suspect]
     Indication: HYPERTENSION
     Dosage: 25MG/20MG EVERY DAY PO
     Route: 048
     Dates: start: 20070830, end: 20100820
  2. LISINOPRIL AND HYDROCHLOROTHIAZIDE [Suspect]
     Indication: RENAL FAILURE CHRONIC
     Dosage: 25MG/20MG EVERY DAY PO
     Route: 048
     Dates: start: 20070830, end: 20100820

REACTIONS (2)
  - BLOOD CREATINE INCREASED [None]
  - HYPERKALAEMIA [None]
